FAERS Safety Report 19589362 (Version 1)
Quarter: 2021Q3

REPORT INFORMATION
  Report Type: Spontaneous
  Country: FR (occurrence: FR)
  Receive Date: 20210721
  Receipt Date: 20210721
  Transmission Date: 20211014
  Serious: Yes (Hospitalization)
  Sender: FDA-Public Use
  Company Number: FR-ELI_LILLY_AND_COMPANY-FR202107003385

PATIENT
  Age: 61 Year
  Sex: Female
  Weight: 94 kg

DRUGS (15)
  1. CALTRATE WITH VITAMIN D [Concomitant]
     Active Substance: CALCIUM CARBONATE\CHOLECALCIFEROL
     Dosage: UNK, UNKNOWN
     Route: 065
  2. FENOFIBRATE. [Concomitant]
     Active Substance: FENOFIBRATE
     Dosage: UNK, UNKNOWN
     Route: 065
  3. ESIDREX [Concomitant]
     Active Substance: HYDROCHLOROTHIAZIDE
     Dosage: UNK, UNKNOWN
     Route: 065
  4. GLUCOPHAGE [Concomitant]
     Active Substance: METFORMIN HYDROCHLORIDE
     Dosage: UNK, UNKNOWN
     Route: 065
  5. VALIUM [Concomitant]
     Active Substance: DIAZEPAM
     Dosage: UNK, UNKNOWN
     Route: 065
  6. ESOMEPRAZOLE. [Concomitant]
     Active Substance: ESOMEPRAZOLE MAGNESIUM
     Dosage: UNK, UNKNOWN
     Route: 065
  7. PRAVASTATINE [PRAVASTATIN SODIUM] [Concomitant]
     Active Substance: PRAVASTATIN SODIUM
     Dosage: UNK, UNKNOWN
     Route: 065
  8. CORTANCYL [Concomitant]
     Active Substance: PREDNISONE
     Dosage: UNK, UNKNOWN
     Route: 065
  9. CETIRIZINE DIHYDROCHLORIDE [Concomitant]
     Active Substance: CETIRIZINE HYDROCHLORIDE
     Dosage: UNK, UNKNOWN
     Route: 065
  10. PROTHIADEN [Concomitant]
     Active Substance: DOTHIEPIN HYDROCHLORIDE
     Dosage: UNK, UNKNOWN
     Route: 065
  11. VENLAFAXIN [Concomitant]
     Active Substance: VENLAFAXINE HYDROCHLORIDE
     Dosage: UNK, UNKNOWN
     Route: 065
  12. APROVEL [Concomitant]
     Active Substance: IRBESARTAN
     Dosage: UNK, UNKNOWN
     Route: 065
  13. XANAX [Concomitant]
     Active Substance: ALPRAZOLAM
     Dosage: UNK, UNKNOWN
     Route: 065
  14. TARDYFERON [Concomitant]
     Active Substance: FERROUS SULFATE
     Dosage: UNK, UNKNOWN
     Route: 065
  15. OLUMIANT [Suspect]
     Active Substance: BARICITINIB
     Indication: RHEUMATOID ARTHRITIS
     Dosage: UNK, UNKNOWN
     Route: 048
     Dates: start: 2017, end: 20210624

REACTIONS (2)
  - Escherichia pyelonephritis [Recovering/Resolving]
  - Acute kidney injury [Recovering/Resolving]

NARRATIVE: CASE EVENT DATE: 20210620
